FAERS Safety Report 6926214-4 (Version None)
Quarter: 2010Q3

REPORT INFORMATION
  Report Type: 
  Country: None (occurrence: None)
  Receive Date: 20100816
  Receipt Date: 20100802
  Transmission Date: 20110219
  Serious: Yes (Other)
  Sender: FDA-Public Use
  Company Number: FR-MYLANLABS-2010S1013886

PATIENT
  Age: 66 Year
  Sex: Male

DRUGS (3)
  1. ESCITALOPRAM [Suspect]
     Indication: DEPRESSION
     Route: 065
  2. FENTANYL [Interacting]
     Indication: PAIN
     Dosage: 200 MICROG/PUFF
     Route: 045
  3. OXYCODONE [Interacting]
     Indication: PAIN
     Route: 048

REACTIONS (2)
  - DRUG INTERACTION [None]
  - SEROTONIN SYNDROME [None]
